FAERS Safety Report 25626992 (Version 2)
Quarter: 2025Q4

REPORT INFORMATION
  Report Type: Spontaneous
  Country: US (occurrence: US)
  Receive Date: 20250731
  Receipt Date: 20251218
  Transmission Date: 20260118
  Serious: Yes (Hospitalization)
  Sender: ELI LILLY AND COMPANY
  Company Number: US-ELI_LILLY_AND_COMPANY-US202507026403

PATIENT
  Age: 56 Year
  Sex: Female
  Weight: 180 kg

DRUGS (20)
  1. TRULICITY [Suspect]
     Active Substance: DULAGLUTIDE
     Indication: Type 2 diabetes mellitus
     Dosage: 0.75 MG, WEEKLY (1/W)
     Route: 065
     Dates: start: 20220114, end: 20220720
  2. OZEMPIC [Suspect]
     Active Substance: SEMAGLUTIDE
     Indication: Type 2 diabetes mellitus
     Dosage: 0.25 MG, WEEKLY (1/W)
     Route: 065
     Dates: start: 20200110, end: 20200306
  3. OZEMPIC [Suspect]
     Active Substance: SEMAGLUTIDE
     Dosage: 0.25 MG, WEEKLY (1/W)
     Route: 065
     Dates: start: 20220119, end: 20220217
  4. RYBELSUS [Suspect]
     Active Substance: SEMAGLUTIDE
     Indication: Type 2 diabetes mellitus
     Dosage: 7 MG, WEEKLY (1/W)
     Route: 065
     Dates: start: 20220310, end: 20231017
  5. BUSPIRONE [Concomitant]
     Active Substance: BUSPIRONE HYDROCHLORIDE
     Indication: Anxiety
  6. LACTULOSE [Concomitant]
     Active Substance: LACTULOSE
     Indication: Constipation
     Dosage: UNK
     Dates: start: 20220407, end: 20220707
  7. ESCITALOPRAM [Concomitant]
     Active Substance: ESCITALOPRAM OXALATE
     Indication: Depression
  8. TRAZODONE [Concomitant]
     Active Substance: TRAZODONE HYDROCHLORIDE
     Indication: Depression
     Dosage: UNK
     Dates: start: 20230116, end: 20230208
  9. GLIPIZIDE [Concomitant]
     Active Substance: GLIPIZIDE
     Indication: Diabetes mellitus
     Dosage: UNK
     Dates: start: 20220922, end: 20230911
  10. HUMALOG [Concomitant]
     Active Substance: INSULIN LISPRO
     Indication: Diabetes mellitus
     Dosage: UNK
     Dates: start: 20220311, end: 20230407
  11. JARDIANCE [Concomitant]
     Active Substance: EMPAGLIFLOZIN
     Indication: Diabetes mellitus
     Dosage: UNK
     Dates: start: 20220713, end: 20221008
  12. NOVOLOG [Concomitant]
     Active Substance: INSULIN ASPART
     Indication: Diabetes mellitus
     Dosage: UNK
     Dates: start: 20200115, end: 20220104
  13. TOUJEO [Concomitant]
     Active Substance: INSULIN GLARGINE
     Indication: Diabetes mellitus
     Dosage: UNK
     Dates: start: 20200130, end: 20230726
  14. VALSARTAN [Concomitant]
     Active Substance: VALSARTAN
     Indication: Blood pressure increased
     Dosage: UNK
     Dates: start: 20201118, end: 20230119
  15. PAROXETINE [Concomitant]
     Active Substance: PAROXETINE
     Indication: Mental disorder
  16. LINZESS [Concomitant]
     Active Substance: LINACLOTIDE
     Indication: Nausea
     Dosage: UNK
     Dates: start: 20230428, end: 20230428
  17. ONDANSETRON [Concomitant]
     Active Substance: ONDANSETRON
     Indication: Nausea
     Dosage: UNK
     Dates: start: 20200106, end: 20230913
  18. FAMOTIDINE [Concomitant]
     Active Substance: FAMOTIDINE
     Indication: Abdominal discomfort
  19. OMEPRAZOLE [Concomitant]
     Active Substance: OMEPRAZOLE
     Indication: Abdominal discomfort
     Dosage: UNK
     Dates: start: 20201019, end: 20201019
  20. PANTOPRAZOLE [Concomitant]
     Active Substance: PANTOPRAZOLE
     Indication: Abdominal discomfort
     Dosage: UNK
     Dates: start: 20200825, end: 20230911

REACTIONS (6)
  - Impaired gastric emptying [Recovered/Resolved]
  - Nausea [Recovered/Resolved]
  - Vomiting [Recovered/Resolved]
  - Constipation [Recovered/Resolved]
  - Abdominal pain [Recovered/Resolved]
  - Diarrhoea [Unknown]

NARRATIVE: CASE EVENT DATE: 20210101
